FAERS Safety Report 8955632 (Version 3)
Quarter: 2013Q2

REPORT INFORMATION
  Report Type: Report from Study
  Country: US (occurrence: US)
  Receive Date: 20121207
  Receipt Date: 20130405
  Transmission Date: 20140414
  Serious: Yes (Hospitalization, Other)
  Sender: FDA-Public Use
  Company Number: US-ABBOTT-12P-163-1015711-00

PATIENT
  Age: 68 Year
  Sex: Female
  Weight: 103.51 kg

DRUGS (12)
  1. HUMIRA [Suspect]
     Indication: RHEUMATOID ARTHRITIS
     Dates: start: 2005, end: 201201
  2. HUMIRA [Suspect]
     Dates: start: 201204
  3. METHOTREXATE [Concomitant]
     Indication: PRODUCT USED FOR UNKNOWN INDICATION
  4. FOLIC ACID [Concomitant]
     Indication: RHEUMATOID ARTHRITIS
  5. LOSARTAN [Concomitant]
     Indication: HYPERTENSION
  6. METOPROLOL [Concomitant]
     Indication: RHEUMATOID ARTHRITIS
  7. OMEPRAZOLE [Concomitant]
     Indication: GASTROOESOPHAGEAL REFLUX DISEASE
  8. POTASSIUM [Concomitant]
  9. VERAPAMIL [Concomitant]
     Indication: HYPERTENSION
  10. CALCIUM [Concomitant]
     Indication: MINERAL SUPPLEMENTATION
  11. MULTIVITAMIN [Concomitant]
     Indication: VITAMIN SUPPLEMENTATION
  12. IRON [Concomitant]
     Indication: MINERAL SUPPLEMENTATION

REACTIONS (8)
  - Volvulus [Recovered/Resolved]
  - Hernia [Recovered/Resolved]
  - Pulmonary mass [Recovered/Resolved]
  - Lung neoplasm malignant [Recovered/Resolved]
  - Vomiting [Recovered/Resolved]
  - Abdominal pain [Recovered/Resolved]
  - Cholelithiasis [Recovered/Resolved]
  - Lung neoplasm malignant [Unknown]
